FAERS Safety Report 4626638-4 (Version None)
Quarter: 2005Q1

REPORT INFORMATION
  Report Type: 
  Country: None (occurrence: None)
  Receive Date: 20050330
  Receipt Date: 20050315
  Transmission Date: 20050727
  Serious: Yes (Hospitalization, Congenital Anomaly)
  Sender: FDA-Public Use
  Company Number: STA-AE-05-005

PATIENT
  Age: 23 Month
  Sex: Male
  Weight: 14.5 kg

DRUGS (3)
  1. NAPROXEN [Suspect]
     Indication: MIGRAINE
     Dosage: 550 MG TWICE A WEEK
     Route: 064
  2. BISOPROLOL FUMARATE [Suspect]
     Indication: MIGRAINE
     Dosage: 5 MG ONCE DAILY
     Route: 064
  3. SUMITRIPTAN [Concomitant]

REACTIONS (14)
  - BREECH PRESENTATION [None]
  - CAESAREAN SECTION [None]
  - CLEFT LIP AND PALATE [None]
  - CONGENITAL NOSE MALFORMATION [None]
  - DRUG EXPOSURE DURING PREGNANCY [None]
  - FACIAL DYSMORPHISM [None]
  - HYPERTELORISM OF ORBIT [None]
  - KARYOTYPE ANALYSIS ABNORMAL [None]
  - MULTIPLE CONGENITAL ABNORMALITIES [None]
  - PELVIC DEFORMITY [None]
  - PHALANGEAL AGENESIS [None]
  - PHALANGEAL HYPOPLASIA [None]
  - RADIAL NERVE PALSY [None]
  - TOE DEFORMITY [None]
